FAERS Safety Report 15880223 (Version 2)
Quarter: 2019Q4

REPORT INFORMATION
  Report Type: Report from Study
  Country: JP (occurrence: JP)
  Receive Date: 20190128
  Receipt Date: 20191205
  Transmission Date: 20200122
  Serious: Yes (Hospitalization)
  Sender: FDA-Public Use
  Company Number: PHJP2019JP000996

PATIENT
  Age: 13 Year
  Sex: Male

DRUGS (19)
  1. ILARIS [Suspect]
     Active Substance: CANAKINUMAB
     Dosage: 180 MG
     Route: 058
     Dates: start: 20181120
  2. ILARIS [Suspect]
     Active Substance: CANAKINUMAB
     Dosage: 195 MG
     Route: 058
     Dates: start: 20190213
  3. PROGRAF [Suspect]
     Active Substance: TACROLIMUS
     Indication: STILL^S DISEASE
     Dosage: 2 MG
     Route: 048
     Dates: start: 20180704, end: 20190326
  4. PREDONINE [Suspect]
     Active Substance: PREDNISOLONE
     Dosage: 1 MG
     Route: 048
     Dates: start: 20180926, end: 20190604
  5. ILARIS [Suspect]
     Active Substance: CANAKINUMAB
     Indication: STILL^S DISEASE
     Dosage: 151.5 MG
     Route: 058
     Dates: start: 20160609, end: 20180606
  6. BONALON [Suspect]
     Active Substance: ALENDRONATE SODIUM
     Indication: PRODUCT USED FOR UNKNOWN INDICATION
     Dosage: UNK
     Route: 065
  7. ILARIS [Suspect]
     Active Substance: CANAKINUMAB
     Dosage: 150 MG
     Route: 058
     Dates: start: 20180704
  8. ILARIS [Suspect]
     Active Substance: CANAKINUMAB
     Dosage: 165 MG
     Route: 058
     Dates: start: 20180926
  9. ILARIS [Suspect]
     Active Substance: CANAKINUMAB
     Dosage: 195 MG
     Route: 058
     Dates: start: 20190313
  10. PREDONINE [Suspect]
     Active Substance: PREDNISOLONE
     Indication: STILL^S DISEASE
     Dosage: 2 MG
     Route: 048
     Dates: start: 20180704, end: 20180828
  11. PREDONINE [Suspect]
     Active Substance: PREDNISOLONE
     Dosage: 1.5 MG
     Route: 048
     Dates: start: 20180829, end: 20180925
  12. ILARIS [Suspect]
     Active Substance: CANAKINUMAB
     Dosage: 165 MG
     Route: 058
     Dates: start: 20180801
  13. ILARIS [Suspect]
     Active Substance: CANAKINUMAB
     Dosage: 195 MG
     Route: 058
     Dates: start: 20181219
  14. ILARIS [Suspect]
     Active Substance: CANAKINUMAB
     Dosage: 195 MG
     Route: 058
     Dates: start: 20190116
  15. ILARIS [Suspect]
     Active Substance: CANAKINUMAB
     Dosage: 180 MG
     Route: 058
     Dates: start: 20181024
  16. ILARIS [Suspect]
     Active Substance: CANAKINUMAB
     Dosage: 165 MG
     Route: 058
     Dates: start: 20180829
  17. ILARIS [Suspect]
     Active Substance: CANAKINUMAB
     Dosage: 195 MG
     Route: 058
     Dates: start: 20190410
  18. ILARIS [Suspect]
     Active Substance: CANAKINUMAB
     Dosage: 195 MG
     Route: 058
     Dates: start: 20190508
  19. ILARIS [Suspect]
     Active Substance: CANAKINUMAB
     Dosage: 195 MG
     Route: 058
     Dates: start: 20190605

REACTIONS (3)
  - Pancreatitis [Recovered/Resolved]
  - Lipase increased [Unknown]
  - Upper respiratory tract inflammation [Recovered/Resolved]

NARRATIVE: CASE EVENT DATE: 20190116
